FAERS Safety Report 6459170-6 (Version None)
Quarter: 2009Q4

REPORT INFORMATION
  Report Type: 
  Country: None (occurrence: None)
  Receive Date: 20091127
  Receipt Date: 20091116
  Transmission Date: 20100525
  Serious: Yes (Hospitalization)
  Sender: FDA-Public Use
  Company Number: GB-ELI_LILLY_AND_COMPANY-GB200911004230

PATIENT
  Sex: Female
  Weight: 46 kg

DRUGS (11)
  1. GEMCITABINE HCL [Suspect]
     Indication: DIFFUSE LARGE B-CELL LYMPHOMA
     Dosage: 1 G/M2 1216MG, OTHER
     Route: 042
  2. GEMCITABINE HCL [Suspect]
     Dosage: 875 MG, OTHER
     Route: 042
  3. CYCLOPHOSPHAMIDE [Suspect]
     Indication: DIFFUSE LARGE B-CELL LYMPHOMA
     Dosage: 1100 MG, OTHER
     Route: 042
  4. VINCRISTINE SULFATE [Suspect]
     Indication: DIFFUSE LARGE B-CELL LYMPHOMA
     Dosage: 2 MG, OTHER
     Route: 042
  5. RITUXIMAB [Suspect]
     Indication: DIFFUSE LARGE B-CELL LYMPHOMA
     Dosage: 540 MG, OTHER
     Route: 042
  6. PEGFILGRASTIM [Suspect]
     Indication: DIFFUSE LARGE B-CELL LYMPHOMA
     Dosage: 6 MG, ONCE PER CYCLE
     Route: 058
  7. OTHER PHARMA COMPANY INV DRUG [Suspect]
     Indication: DIFFUSE LARGE B-CELL LYMPHOMA
     Dosage: 100 MG, OTHER
     Route: 048
  8. DOMPERIDONE [Concomitant]
     Indication: PROPHYLAXIS OF NAUSEA AND VOMITING
     Dosage: 20 MG, 4/D
     Route: 048
     Dates: start: 20091007
  9. FURSEMIDE [Concomitant]
     Indication: HYPERTENSION
     Dosage: 20 MG, DAILY (1/D)
     Route: 048
  10. OMEPRAZOLE [Concomitant]
     Indication: PROPHYLAXIS OF NAUSEA AND VOMITING
     Dosage: 20 MG, DAILY (1/D)
     Route: 048
     Dates: start: 20091003
  11. CO-TRIMOXAZOLE [Concomitant]
     Indication: INFECTION PROPHYLAXIS
     Dosage: 480 MG, 2/D
     Route: 048
     Dates: start: 20091006

REACTIONS (1)
  - NEUTROPENIC SEPSIS [None]
